FAERS Safety Report 26184247 (Version 1)
Quarter: 2025Q4

REPORT INFORMATION
  Report Type: Spontaneous
  Country: US (occurrence: US)
  Receive Date: 20251222
  Receipt Date: 20251222
  Transmission Date: 20260118
  Serious: No
  Sender: EPIC PHARM
  Company Number: US-EPICPHARMA-US-2025EPCSPO01220

PATIENT
  Age: 49 Year
  Sex: Female

DRUGS (29)
  1. RIFAMPIN [Suspect]
     Active Substance: RIFAMPIN
     Indication: Mycobacterium avium complex infection
     Route: 065
     Dates: start: 20240213, end: 202404
  2. ETHAMBUTOL HYDROCHLORIDE [Suspect]
     Active Substance: ETHAMBUTOL HYDROCHLORIDE
     Indication: Mycobacterium avium complex infection
     Route: 065
     Dates: start: 20240130
  3. ETHAMBUTOL HYDROCHLORIDE [Suspect]
     Active Substance: ETHAMBUTOL HYDROCHLORIDE
     Route: 065
  4. ZITHROMAX [Suspect]
     Active Substance: AZITHROMYCIN DIHYDRATE
     Indication: Mycobacterium avium complex infection
     Route: 065
     Dates: start: 20240131
  5. ZITHROMAX [Suspect]
     Active Substance: AZITHROMYCIN DIHYDRATE
     Route: 048
     Dates: end: 20250903
  6. ARIKAYCE [Suspect]
     Active Substance: AMIKACIN
     Indication: Mycobacterium avium complex infection
     Dates: start: 20240810
  7. ARIKAYCE [Suspect]
     Active Substance: AMIKACIN
     Route: 065
  8. ARIKAYCE [Suspect]
     Active Substance: AMIKACIN
     Route: 065
     Dates: start: 20241220
  9. LEVAQUIN [Suspect]
     Active Substance: LEVOFLOXACIN
     Indication: Mycobacterium avium complex infection
     Route: 065
     Dates: start: 202310
  10. LEVAQUIN [Suspect]
     Active Substance: LEVOFLOXACIN
     Route: 065
     Dates: start: 202312, end: 202312
  11. LEVAQUIN [Suspect]
     Active Substance: LEVOFLOXACIN
     Route: 065
     Dates: start: 202401
  12. LEVAQUIN [Suspect]
     Active Substance: LEVOFLOXACIN
     Route: 065
     Dates: start: 202407
  13. LEVAQUIN [Suspect]
     Active Substance: LEVOFLOXACIN
     Route: 048
     Dates: start: 20250925, end: 20251009
  14. RIFABUTIN [Concomitant]
     Active Substance: RIFABUTIN
     Route: 065
     Dates: start: 20240626
  15. RIFABUTIN [Concomitant]
     Active Substance: RIFABUTIN
     Route: 048
     Dates: start: 20250319, end: 20250904
  16. PREDNISONE [Concomitant]
     Active Substance: PREDNISONE
     Indication: Bronchiectasis
     Route: 065
  17. ADVAIR HFA [Concomitant]
     Active Substance: FLUTICASONE PROPIONATE\SALMETEROL XINAFOATE
     Indication: Product used for unknown indication
     Route: 045
  18. XOPENEX [Concomitant]
     Active Substance: LEVALBUTEROL HYDROCHLORIDE
     Indication: Product used for unknown indication
     Route: 065
  19. PAXLOVID [Concomitant]
     Active Substance: NIRMATRELVIR\RITONAVIR
     Route: 065
  20. ENGERIX-B [HEPATITIS B VACCINE] [Concomitant]
     Indication: Immunisation
     Route: 030
     Dates: start: 20240807
  21. INFLUENZA VIRUS VACCINE [Concomitant]
     Active Substance: INFLUENZA VIRUS VACCINE
     Indication: Immunisation
     Route: 065
  22. PREVNAR 20 [Concomitant]
     Active Substance: PNEUMOCOCCAL 20-VALENT CONJUGATE VACCINE
     Indication: Immunisation
     Route: 065
     Dates: start: 20250403, end: 20250403
  23. SPIKEVAX [Concomitant]
     Active Substance: CX-046684
     Indication: Immunisation
     Route: 030
     Dates: start: 20240907, end: 20240907
  24. EPIPEN [Concomitant]
     Active Substance: EPINEPHRINE
     Indication: Anaphylactic reaction
     Route: 030
     Dates: start: 20230804
  25. BREO ELLIPTA [Concomitant]
     Active Substance: FLUTICASONE FUROATE\VILANTEROL TRIFENATATE
     Indication: Product used for unknown indication
     Dosage: 200-25 MCG/DOS
     Dates: start: 20250331
  26. BREO ELLIPTA [Concomitant]
     Active Substance: FLUTICASONE FUROATE\VILANTEROL TRIFENATATE
     Dosage: 200-25 MCG/DOS
     Dates: start: 20250401
  27. LEVALBUTEROL [Concomitant]
     Active Substance: LEVALBUTEROL
     Indication: Wheezing
     Dosage: 45 MCG/ACTUATION INHALER
     Dates: start: 20250530
  28. NYSTATIN [Concomitant]
     Active Substance: NYSTATIN
     Indication: Product used for unknown indication
     Dosage: 100,000 UNIT/ML, SWISH AND SWALLOW
     Route: 048
     Dates: start: 20250507
  29. SODIUM CHLORIDE [Concomitant]
     Active Substance: SODIUM CHLORIDE
     Indication: Bronchiectasis
     Route: 045
     Dates: start: 20240304

REACTIONS (13)
  - Abdominal discomfort [Unknown]
  - Appetite disorder [Unknown]
  - Productive cough [Unknown]
  - Rhinorrhoea [Unknown]
  - Eye pruritus [Unknown]
  - Upper-airway cough syndrome [Unknown]
  - Anxiety [Unknown]
  - Brain fog [Unknown]
  - Weight decreased [Unknown]
  - Dyspnoea [Unknown]
  - Fatigue [Unknown]
  - Nausea [Unknown]
  - Product use in unapproved indication [Unknown]

NARRATIVE: CASE EVENT DATE: 20240101
